FAERS Safety Report 17352369 (Version 1)
Quarter: 2020Q1

REPORT INFORMATION
  Report Type: Other
  Country: DE (occurrence: DE)
  Receive Date: 20200130
  Receipt Date: 20200130
  Transmission Date: 20200409
  Serious: Yes (Death, Life-Threatening, Hospitalization)
  Sender: FDA-Public Use
  Company Number: DE-CELLTRION INC.-2018DE022030

PATIENT

DRUGS (1)
  1. TRASTUZUMAB (UNKNOWN) [Suspect]
     Active Substance: TRASTUZUMAB
     Indication: BREAST CANCER
     Dosage: 480 MG; LAST DOSE OF TRASTUZUMAB PRIOR TO EVENT: 17/JUL/2018
     Route: 042
     Dates: start: 20180717, end: 20180717

REACTIONS (5)
  - Clostridium difficile infection [Recovered/Resolved]
  - Shock [Fatal]
  - Atrioventricular block [Fatal]
  - Cardiac arrest [Fatal]
  - Overdose [Unknown]

NARRATIVE: CASE EVENT DATE: 20180717
